FAERS Safety Report 9285913 (Version 2)
Quarter: 2013Q2

REPORT INFORMATION
  Report Type: Spontaneous
  Country: GB (occurrence: None)
  Receive Date: 20130506
  Receipt Date: 20130514
  Transmission Date: 20140414
  Serious: Yes (Life-Threatening)
  Sender: FDA-Public Use
  Company Number: GER/UKI/13/0029338

PATIENT
  Age: 75 Year
  Sex: Female

DRUGS (1)
  1. PIOGLITAZONE (PIOGLITAZONE) [Suspect]
     Indication: DIABETES MELLITUS
     Route: 048
     Dates: start: 20040121, end: 20130311

REACTIONS (2)
  - Bladder cancer [None]
  - Ureteric cancer [None]
